FAERS Safety Report 16706283 (Version 1)
Quarter: 2019Q3

REPORT INFORMATION
  Report Type: Spontaneous
  Country: US (occurrence: US)
  Receive Date: 20190628
  Receipt Date: 20190628
  Transmission Date: 20191004
  Serious: No
  Sender: FDA-Public Use
  Company Number: None

PATIENT
  Age: 43 Year
  Sex: Female
  Weight: 60.78 kg

DRUGS (1)
  1. HYDROXYZINE HCL [Suspect]
     Active Substance: HYDROXYZINE HYDROCHLORIDE
     Indication: MAST CELL ACTIVATION SYNDROME
     Dosage: ?          OTHER DOSE:1 TO 4 TABS;?
     Route: 048
     Dates: start: 20190610, end: 20190617

REACTIONS (3)
  - Product substitution issue [None]
  - Rash [None]
  - Product quality issue [None]

NARRATIVE: CASE EVENT DATE: 20190610
